FAERS Safety Report 6295567-5 (Version None)
Quarter: 2009Q3

REPORT INFORMATION
  Report Type: 
  Country: None (occurrence: None)
  Receive Date: 20090731
  Receipt Date: 20090717
  Transmission Date: 20100115
  Serious: Yes (Other)
  Sender: FDA-Public Use
  Company Number: 237999K09USA

PATIENT
  Age: 32 Year
  Sex: Female

DRUGS (2)
  1. REBIF [Suspect]
     Indication: MULTIPLE SCLEROSIS
     Dosage: 44 MCG, 3 IN 1 WEEKS, SUBCUTANEOUS
     Route: 058
     Dates: start: 20080303
  2. PERCOCET [Concomitant]

REACTIONS (6)
  - CONDITION AGGRAVATED [None]
  - FALL [None]
  - JOINT INJURY [None]
  - MULTIPLE SCLEROSIS [None]
  - SKIN GRAFT [None]
  - WOUND [None]
